FAERS Safety Report 8615259-4 (Version None)
Quarter: 2012Q3

REPORT INFORMATION
  Report Type: 
  Country: None (occurrence: None)
  Receive Date: 20120823
  Receipt Date: 20120814
  Transmission Date: 20120928
  Serious: Yes (Hospitalization)
  Sender: FDA-Public Use
  Company Number: FR-SANOFI-AVENTIS-2012SA058284

PATIENT
  Age: 64 Year
  Sex: Male

DRUGS (7)
  1. PROPRANOLOL [Suspect]
     Route: 048
     Dates: start: 20110501, end: 20120614
  2. NOVORAPID [Concomitant]
     Indication: TYPE 1 DIABETES MELLITUS
     Route: 058
     Dates: start: 20120101
  3. LASIX [Suspect]
     Route: 048
     Dates: start: 20110801, end: 20120614
  4. ATORVASTATIN [Suspect]
     Route: 048
     Dates: start: 20110501, end: 20120614
  5. PLAVIX [Concomitant]
     Route: 048
  6. IRBESARTAN [Suspect]
     Route: 048
     Dates: start: 20120406, end: 20120614
  7. LANTUS [Concomitant]
     Indication: TYPE 1 DIABETES MELLITUS
     Route: 058
     Dates: start: 20120101

REACTIONS (2)
  - RHABDOMYOLYSIS [None]
  - RENAL FAILURE ACUTE [None]
